FAERS Safety Report 25369719 (Version 1)
Quarter: 2025Q2

REPORT INFORMATION
  Report Type: Spontaneous
  Country: US (occurrence: US)
  Receive Date: 20250528
  Receipt Date: 20250528
  Transmission Date: 20250716
  Serious: Yes (Hospitalization, Other)
  Sender: ORGANON
  Company Number: US-ORGANON-O2505USA003826

PATIENT
  Sex: Female

DRUGS (1)
  1. NEXPLANON [Suspect]
     Active Substance: ETONOGESTREL
     Indication: Contraception
     Route: 059
     Dates: end: 2021

REACTIONS (1)
  - Myasthenia gravis [Recovering/Resolving]

NARRATIVE: CASE EVENT DATE: 20210801
